FAERS Safety Report 15424120 (Version 1)
Quarter: 2018Q3

REPORT INFORMATION
  Report Type: Spontaneous
  Country: US (occurrence: US)
  Receive Date: 20180914
  Receipt Date: 20180914
  Transmission Date: 20181010
  Serious: No
  Sender: FDA-Public Use
  Company Number: None

PATIENT
  Age: 27 Year
  Sex: Male

DRUGS (1)
  1. SYMDEKO [Suspect]
     Active Substance: IVACAFTOR\TEZACAFTOR
     Indication: CYSTIC FIBROSIS
     Route: 048
     Dates: start: 20180520, end: 201806

REACTIONS (4)
  - Cough [None]
  - Drug intolerance [None]
  - Dyspnoea [None]
  - Weight decreased [None]

NARRATIVE: CASE EVENT DATE: 20180914
